FAERS Safety Report 5298520-3 (Version None)
Quarter: 2007Q2

REPORT INFORMATION
  Report Type: 
  Country: None (occurrence: None)
  Receive Date: 20070409
  Receipt Date: 20070326
  Transmission Date: 20071010
  Serious: Yes (Hospitalization)
  Sender: FDA-Public Use
  Company Number: 2007BI005119

PATIENT
  Age: 79 Year
  Sex: Male

DRUGS (3)
  1. ZEVALIN [Suspect]
     Indication: NON-HODGKIN'S LYMPHOMA
     Dosage: ; 1X; IV
     Route: 042
     Dates: start: 20070228, end: 20070228
  2. RITUXIMAB [Concomitant]
  3. ANTIBIOTICS [Concomitant]

REACTIONS (3)
  - BLOOD GLUCOSE DECREASED [None]
  - INJECTION SITE ULCER [None]
  - PNEUMONIA [None]
